FAERS Safety Report 7263977-5 (Version None)
Quarter: 2011Q1

REPORT INFORMATION
  Report Type: 
  Country: None (occurrence: None)
  Receive Date: 20110130
  Receipt Date: 20101101
  Transmission Date: 20110831
  Serious: No
  Sender: FDA-Public Use
  Company Number: US-ABBOTT-10P-163-0682649-00

PATIENT
  Sex: Female
  Weight: 99.88 kg

DRUGS (9)
  1. CALCIUM W/VITAMIN D [Concomitant]
     Indication: SUPPLEMENTATION THERAPY
     Route: 048
  2. PREDNISONE [Concomitant]
     Indication: RHEUMATOID ARTHRITIS
     Dosage: QOD ALT 1/2 QOD
     Route: 048
  3. HYDROCHLOROTHIAZIDE [Concomitant]
     Indication: HYPERTENSION
     Route: 048
  4. MULTI-VITAMIN [Concomitant]
     Indication: SUPPLEMENTATION THERAPY
     Route: 048
  5. HUMIRA [Suspect]
     Indication: RHEUMATOID ARTHRITIS
     Route: 058
     Dates: start: 20100601, end: 20101001
  6. METFORMIN HCL [Concomitant]
     Indication: DIABETES MELLITUS
     Route: 048
  7. ZYRTEC [Concomitant]
     Indication: HYPERSENSITIVITY
     Route: 048
  8. BENICAR [Concomitant]
     Indication: HYPERTENSION
     Route: 048
  9. LEXAPRO [Concomitant]
     Indication: DEPRESSION
     Route: 048

REACTIONS (4)
  - COUGH [None]
  - TOOTH INFECTION [None]
  - PARANASAL SINUS HYPERSECRETION [None]
  - BLOOD GLUCOSE INCREASED [None]
